FAERS Safety Report 8835734 (Version 1)
Quarter: 2012Q4

REPORT INFORMATION
  Report Type: 
  Country: BR (occurrence: BR)
  Receive Date: 20121011
  Receipt Date: 20121011
  Transmission Date: 20130627
  Serious: Yes (Other)
  Sender: FDA-Public Use
  Company Number: BR-ASTRAZENECA-2012SE76524

PATIENT
  Age: 60 Year
  Sex: Male

DRUGS (4)
  1. ATACAND [Suspect]
     Indication: HYPERTENSION
     Route: 048
  2. SELOZOK [Suspect]
     Indication: HYPERTENSION
     Route: 048
  3. CRESTOR [Suspect]
     Indication: DYSLIPIDAEMIA
     Route: 048
     Dates: start: 2004, end: 201208
  4. ACETAMINOPHEN [Suspect]
     Route: 065
     Dates: start: 2004, end: 201208

REACTIONS (2)
  - Drug-induced liver injury [Recovered/Resolved]
  - Myalgia [Unknown]
